FAERS Safety Report 24700008 (Version 1)
Quarter: 2024Q4

REPORT INFORMATION
  Report Type: Spontaneous
  Country: US (occurrence: US)
  Receive Date: 20241205
  Receipt Date: 20241205
  Transmission Date: 20250115
  Serious: No
  Sender: ALIMERA
  Company Number: US-ALIMERA SCIENCES INC.-US-A16013-24-000545

PATIENT
  Age: 61 Year
  Sex: Male

DRUGS (1)
  1. YUTIQ [Suspect]
     Active Substance: FLUOCINOLONE ACETONIDE
     Indication: Noninfective chorioretinitis
     Dosage: 0.18 MILLIGRAM, SINGLE -LEFT EYE
     Route: 031
     Dates: start: 20240730, end: 20240730

REACTIONS (3)
  - Medical device removal [Recovered/Resolved]
  - Patient uncooperative [Unknown]
  - Product administration error [Unknown]

NARRATIVE: CASE EVENT DATE: 20240730
